FAERS Safety Report 4862846-5 (Version None)
Quarter: 2005Q4

REPORT INFORMATION
  Report Type: 
  Country: None (occurrence: None)
  Receive Date: 20051221
  Receipt Date: 20051215
  Transmission Date: 20060501
  Serious: Yes (Hospitalization)
  Sender: FDA-Public Use
  Company Number: 2005CG02080

PATIENT
  Age: 72 Year
  Sex: Female
  Weight: 60 kg

DRUGS (8)
  1. ZESTORETIC [Suspect]
     Dosage: 20 + 12.5 MG DAILY
     Route: 048
     Dates: start: 20020715, end: 20050905
  2. CRESTOR [Concomitant]
     Route: 048
     Dates: start: 20050615, end: 20050905
  3. DEPAMIDE [Concomitant]
     Route: 048
     Dates: start: 20050819
  4. NEULEPTIL 1% [Concomitant]
     Route: 048
     Dates: start: 20050819, end: 20050905
  5. TANAKAN [Concomitant]
     Route: 048
     Dates: start: 20020715, end: 20050905
  6. KERLONE [Concomitant]
     Route: 048
     Dates: start: 20020715
  7. ASPIRIN [Concomitant]
     Dates: start: 20020715
  8. ENDOTELON [Concomitant]
     Dates: start: 20020715

REACTIONS (12)
  - BLOOD PRESSURE SYSTOLIC INCREASED [None]
  - DIARRHOEA [None]
  - DIZZINESS POSTURAL [None]
  - DYSSTASIA [None]
  - FALL [None]
  - HAEMATOMA [None]
  - HYPONATRAEMIA [None]
  - LOSS OF CONSCIOUSNESS [None]
  - ORTHOSTATIC HYPOTENSION [None]
  - RHABDOMYOLYSIS [None]
  - URINARY RETENTION [None]
  - VOMITING [None]
